FAERS Safety Report 8333121-1 (Version None)
Quarter: 2012Q2

REPORT INFORMATION
  Report Type: 
  Country: None (occurrence: None)
  Receive Date: 20120503
  Receipt Date: 20120424
  Transmission Date: 20120825
  Serious: Yes (Hospitalization, Other)
  Sender: FDA-Public Use
  Company Number: US-ABBOTT-12P-163-0909075-00

PATIENT
  Sex: Male
  Weight: 131.66 kg

DRUGS (1)
  1. HUMIRA [Suspect]
     Indication: PSORIATIC ARTHROPATHY
     Dates: start: 20110101, end: 20120202

REACTIONS (7)
  - BLOOD GLUCOSE INCREASED [None]
  - CHEST PAIN [None]
  - AVIAN INFLUENZA [None]
  - CHILLS [None]
  - CORONARY ARTERY DISEASE [None]
  - DYSPEPSIA [None]
  - BLOOD CHOLESTEROL INCREASED [None]
